FAERS Safety Report 11529617 (Version 1)
Quarter: 2015Q3

REPORT INFORMATION
  Report Type: Spontaneous
  Country: CH (occurrence: CH)
  Receive Date: 20150921
  Receipt Date: 20150921
  Transmission Date: 20151125
  Serious: Yes (Hospitalization)
  Sender: FDA-Public Use
  Company Number: CH-009507513-1509CHE008505

PATIENT
  Age: 27 Year
  Sex: Female
  Weight: 44 kg

DRUGS (9)
  1. XANAX [Concomitant]
     Active Substance: ALPRAZOLAM
     Indication: ANXIETY DISORDER
     Dosage: 2.5 MG, 2 PER 1 DAY
     Route: 048
  2. NOXAFIL [Suspect]
     Active Substance: POSACONAZOLE
     Indication: MUCORMYCOSIS
     Dosage: 300 MG, FOUR TIMES DAILY
     Route: 048
     Dates: start: 20150725, end: 20150901
  3. IMPORTAL [Concomitant]
     Active Substance: LACTITOL
     Indication: CONSTIPATION
     Dosage: 20 ML, 2 PER 1 DAY
     Route: 048
  4. BACTRIM [Concomitant]
     Active Substance: SULFAMETHOXAZOLE\TRIMETHOPRIM
     Indication: ANTIFUNGAL PROPHYLAXIS
     Dosage: 1 DF, 3 PER 1 WEEK
     Route: 048
     Dates: start: 201403
  5. CYMBALTA [Concomitant]
     Active Substance: DULOXETINE HYDROCHLORIDE
     Indication: DEPRESSION
     Dosage: 60 MG, 1 PER 1 DAY
     Route: 048
  6. VALTREX [Concomitant]
     Active Substance: VALACYCLOVIR HYDROCHLORIDE
     Indication: ANTIVIRAL PROPHYLAXIS
     Dosage: 500 MG, 1 PER 1 DAY
     Route: 048
  7. CERAZETTE [Concomitant]
     Active Substance: DESOGESTREL
     Indication: CONTRACEPTION
     Dosage: 1 DF, 1 PER 1 DAY
     Route: 048
  8. KONAKION [Concomitant]
     Active Substance: PHYTONADIONE
     Dosage: 10 MG, 3 PER 1 WEEK
     Route: 048
  9. LEUCOVORIN. [Concomitant]
     Active Substance: LEUCOVORIN
     Dosage: 15 MG, 3 PER 1 DAY
     Route: 048

REACTIONS (4)
  - Prescribed overdose [Recovered/Resolved]
  - Arthritis [Recovering/Resolving]
  - Pyrexia [Recovering/Resolving]
  - Fatigue [Recovering/Resolving]

NARRATIVE: CASE EVENT DATE: 20150725
